FAERS Safety Report 23571886 (Version 2)
Quarter: 2024Q3

REPORT INFORMATION
  Report Type: Report from Study
  Country: DE (occurrence: DE)
  Receive Date: 20240227
  Receipt Date: 20240710
  Transmission Date: 20241016
  Serious: Yes (Death, Life-Threatening, Hospitalization)
  Sender: JOHNSON AND JOHNSON
  Company Number: DE-JNJFOC-20240264707

PATIENT
  Age: 68 Year
  Sex: Male
  Weight: 50 kg

DRUGS (3)
  1. SPRAVATO [Suspect]
     Active Substance: ESKETAMINE
     Indication: Depression
     Dates: start: 20240112
  2. SPRAVATO [Suspect]
     Active Substance: ESKETAMINE
     Dosage: 28X2=56 MG
     Dates: start: 20240116
  3. SPRAVATO [Suspect]
     Active Substance: ESKETAMINE
     Dosage: 28X2=56 MG?END OF TREATMENT WITH AGENT ON 26-JAN-2024
     Dates: start: 20240119

REACTIONS (2)
  - Pulmonary sepsis [Fatal]
  - Septic endocarditis [Fatal]

NARRATIVE: CASE EVENT DATE: 20240209
